FAERS Safety Report 4335321-4 (Version None)
Quarter: 2004Q2

REPORT INFORMATION
  Report Type: 
  Country: None (occurrence: None)
  Receive Date: 20040407
  Receipt Date: 20040407
  Transmission Date: 20050107
  Serious: Yes (Life-Threatening, Hospitalization)
  Sender: FDA-Public Use
  Company Number: None

PATIENT
  Age: 45 Year
  Sex: Female
  Weight: 63.5036 kg

DRUGS (1)
  1. PROZAC [Suspect]
     Indication: MAJOR DEPRESSION
     Dosage: ORAL
     Route: 048
     Dates: start: 19940714, end: 19941201

REACTIONS (4)
  - CONFUSIONAL STATE [None]
  - DRUG EFFECT DECREASED [None]
  - SUICIDAL IDEATION [None]
  - TEARFULNESS [None]
